FAERS Safety Report 22709022 (Version 5)
Quarter: 2024Q2

REPORT INFORMATION
  Report Type: Report from Study
  Country: US (occurrence: US)
  Receive Date: 20230717
  Receipt Date: 20240409
  Transmission Date: 20240716
  Serious: Yes (Other)
  Sender: FDA-Public Use
  Company Number: US-ABBVIE-4756038

PATIENT
  Sex: Male

DRUGS (5)
  1. VENCLEXTA [Suspect]
     Active Substance: VENETOCLAX
     Indication: Chronic lymphocytic leukaemia
     Route: 048
     Dates: start: 20230425, end: 20230425
  2. VENCLEXTA [Suspect]
     Active Substance: VENETOCLAX
     Indication: Chronic lymphocytic leukaemia
     Route: 048
     Dates: start: 20230426, end: 20230426
  3. VENCLEXTA [Suspect]
     Active Substance: VENETOCLAX
     Indication: Chronic lymphocytic leukaemia
     Route: 048
     Dates: start: 202304
  4. VENCLEXTA [Suspect]
     Active Substance: VENETOCLAX
     Indication: Chronic lymphocytic leukaemia
     Route: 048
     Dates: start: 2023
  5. NUVIGIL [Suspect]
     Active Substance: ARMODAFINIL
     Indication: Product used for unknown indication
     Route: 065

REACTIONS (33)
  - Spinal operation [Unknown]
  - Fatigue [Unknown]
  - White blood cell count abnormal [Recovered/Resolved]
  - Asthenia [Recovering/Resolving]
  - Chronic traumatic encephalopathy [Unknown]
  - Memory impairment [Unknown]
  - Haemoglobin decreased [Unknown]
  - Dizziness [Unknown]
  - Red blood cell count abnormal [Unknown]
  - Red blood cell count decreased [Recovering/Resolving]
  - Muscular weakness [Unknown]
  - Glycosylated haemoglobin abnormal [Unknown]
  - Haemoglobin abnormal [Unknown]
  - Platelet count decreased [Unknown]
  - Blood glucose abnormal [Unknown]
  - Back pain [Unknown]
  - Urinary incontinence [Unknown]
  - Post-traumatic stress disorder [Unknown]
  - Craniocerebral injury [Unknown]
  - Fall [Unknown]
  - Head injury [Unknown]
  - Dysstasia [Not Recovered/Not Resolved]
  - Pollakiuria [Unknown]
  - Arthritis [Unknown]
  - Neuropathy peripheral [Unknown]
  - Neck pain [Unknown]
  - Red blood cell count decreased [Unknown]
  - Full blood count abnormal [Unknown]
  - Arthralgia [Unknown]
  - Skin abrasion [Unknown]
  - Depression [Unknown]
  - Scab [Unknown]
  - Balance disorder [Unknown]

NARRATIVE: CASE EVENT DATE: 20230101
